FAERS Safety Report 5072195-0 (Version None)
Quarter: 2006Q3

REPORT INFORMATION
  Report Type: 
  Country: None (occurrence: None)
  Receive Date: 20060807
  Receipt Date: 20060724
  Transmission Date: 20061208
  Serious: Yes (Other)
  Sender: FDA-Public Use
  Company Number: PHBS2006BR11218

PATIENT
  Sex: Male

DRUGS (1)
  1. CODATEN [Suspect]
     Indication: BACK DISORDER
     Dosage: 1 DF, BID
     Route: 048
     Dates: start: 20060723, end: 20060724

REACTIONS (6)
  - DIZZINESS [None]
  - EPISTAXIS [None]
  - FEELING HOT [None]
  - OEDEMA [None]
  - POLLAKIURIA [None]
  - VERTIGO [None]
